FAERS Safety Report 10194721 (Version 1)
Quarter: 2014Q2

REPORT INFORMATION
  Report Type: Spontaneous
  Country: FR (occurrence: FR)
  Receive Date: 20140526
  Receipt Date: 20140526
  Transmission Date: 20141212
  Serious: Yes (Hospitalization, Other)
  Sender: FDA-Public Use
  Company Number: FR-BRISTOL-MYERS SQUIBB COMPANY-20759213

PATIENT
  Age: 93 Year
  Sex: Female

DRUGS (2)
  1. COUMADIN TABS 2 MG [Suspect]
     Indication: ATRIAL FIBRILLATION
     Route: 048
  2. COUMADIN TABS 2 MG [Suspect]
     Indication: ARRHYTHMIA
     Route: 048

REACTIONS (2)
  - Haematuria [Recovered/Resolved]
  - Haemoglobin decreased [Unknown]
